FAERS Safety Report 7290866-2 (Version None)
Quarter: 2011Q1

REPORT INFORMATION
  Report Type: 
  Country: None (occurrence: None)
  Receive Date: 20110214
  Receipt Date: 20110207
  Transmission Date: 20110831
  Serious: Yes (Other)
  Sender: FDA-Public Use
  Company Number: US-BAYER-2011-013472

PATIENT
  Sex: Female

DRUGS (2)
  1. YAZ [Suspect]
     Dosage: UNK
     Dates: start: 20080101, end: 20090801
  2. YASMIN [Suspect]
     Dosage: UNK
     Dates: start: 20051201, end: 20071201

REACTIONS (1)
  - CHOLECYSTECTOMY [None]
